FAERS Safety Report 6588133-5 (Version None)
Quarter: 2010Q1

REPORT INFORMATION
  Report Type: 
  Country: None (occurrence: None)
  Receive Date: 20100218
  Receipt Date: 20100212
  Transmission Date: 20100710
  Serious: Yes (Death)
  Sender: FDA-Public Use
  Company Number: US-SANOFI-AVENTIS-2010SA009081

PATIENT
  Sex: Female

DRUGS (1)
  1. PLAVIX [Suspect]
     Route: 048
     Dates: end: 20100203

REACTIONS (1)
  - CORONARY ARTERY INSUFFICIENCY [None]
